FAERS Safety Report 6568112-4 (Version None)
Quarter: 2010Q1

REPORT INFORMATION
  Report Type: 
  Country: None (occurrence: None)
  Receive Date: 20100128
  Receipt Date: 20100120
  Transmission Date: 20100710
  Serious: No
  Sender: FDA-Public Use
  Company Number: 008073

PATIENT
  Age: 3 Year
  Sex: Male

DRUGS (2)
  1. BUSULFEX [Suspect]
     Dosage: INTRAVENOUS
     Route: 042
  2. ANTIBIOTICS [Suspect]

REACTIONS (2)
  - PRURITUS [None]
  - SKIN REACTION [None]
